FAERS Safety Report 5593940-1 (Version None)
Quarter: 2008Q1

REPORT INFORMATION
  Report Type: 
  Country: None (occurrence: None)
  Receive Date: 20080114
  Receipt Date: 20080102
  Transmission Date: 20080703
  Serious: Yes (Hospitalization, Other)
  Sender: FDA-Public Use
  Company Number: 08-000004

PATIENT
  Age: 36 Year
  Sex: Female

DRUGS (2)
  1. ERYC [Suspect]
     Dosage: 250 MG, QD, ORAL
     Route: 048
  2. BETAMETHASONE [Suspect]
     Indication: PREMATURE RUPTURE OF MEMBRANES
     Dosage: 12 MG TWO DOSES, INTRAMUSCULAR
     Route: 030

REACTIONS (18)
  - ABDOMINAL DISTENSION [None]
  - ABDOMINAL PAIN [None]
  - BREECH PRESENTATION [None]
  - CAESAREAN SECTION [None]
  - CHILLS [None]
  - DIARRHOEA [None]
  - DRUG EXPOSURE DURING PREGNANCY [None]
  - FEEDING DISORDER NEONATAL [None]
  - HAEMOGLOBIN DECREASED [None]
  - HYPOTENSION [None]
  - INFLUENZA LIKE ILLNESS [None]
  - JAUNDICE NEONATAL [None]
  - MUSCLE SPASMS [None]
  - OLIGOHYDRAMNIOS [None]
  - PREMATURE BABY [None]
  - PSEUDOMEMBRANOUS COLITIS [None]
  - TENDERNESS [None]
  - UMBILICAL CORD PROLAPSE [None]
